FAERS Safety Report 10936380 (Version 2)
Quarter: 2015Q2

REPORT INFORMATION
  Report Type: Spontaneous
  Country: ES (occurrence: ES)
  Receive Date: 20150321
  Receipt Date: 20150514
  Transmission Date: 20150821
  Serious: Yes (Hospitalization)
  Sender: FDA-Public Use
  Company Number: ES-BIOGENIDEC-2015BI017815

PATIENT
  Age: 18 Year
  Sex: Female

DRUGS (1)
  1. TYSABRI [Suspect]
     Active Substance: NATALIZUMAB
     Indication: MULTIPLE SCLEROSIS
     Route: 042
     Dates: start: 20130708, end: 20141230

REACTIONS (4)
  - Acute respiratory failure [Recovered/Resolved]
  - Immunodeficiency [Unknown]
  - Off label use [Unknown]
  - Pulmonary eosinophilia [Recovered/Resolved]

NARRATIVE: CASE EVENT DATE: 20150124
